FAERS Safety Report 9630799 (Version 3)
Quarter: 2014Q1

REPORT INFORMATION
  Report Type: Spontaneous
  Country: RO (occurrence: RO)
  Receive Date: 20131018
  Receipt Date: 20140206
  Transmission Date: 20141002
  Serious: Yes (Hospitalization, Disabling, Other)
  Sender: FDA-Public Use
  Company Number: RO-JNJFOC-20131008517

PATIENT
  Age: 55 Year
  Sex: Female
  Weight: 93 kg

DRUGS (14)
  1. REMICADE [Suspect]
     Indication: PSORIATIC ARTHROPATHY
     Route: 042
     Dates: start: 20090529, end: 20130416
  2. REMICADE [Suspect]
     Indication: PSORIATIC ARTHROPATHY
     Route: 042
     Dates: start: 20090529, end: 20130416
  3. METHOTREXATE [Suspect]
     Indication: PSORIATIC ARTHROPATHY
     Route: 030
     Dates: start: 20080610, end: 20080912
  4. METHOTREXATE [Suspect]
     Indication: PSORIATIC ARTHROPATHY
     Route: 030
     Dates: start: 20080913, end: 20090907
  5. LEFLUNOMIDE [Suspect]
     Indication: PSORIATIC ARTHROPATHY
     Route: 048
     Dates: start: 20090916
  6. LEFLUNOMIDE [Suspect]
     Indication: PSORIATIC ARTHROPATHY
     Route: 048
     Dates: start: 20090916
  7. CELEBREX [Concomitant]
     Indication: PSORIATIC ARTHROPATHY
     Route: 048
     Dates: start: 20110201, end: 20130601
  8. TERTENSIF [Concomitant]
     Indication: HYPERTENSION
     Route: 048
     Dates: start: 2010
  9. NEBILET [Concomitant]
     Indication: HYPERTENSION
     Route: 048
     Dates: start: 2010
  10. ASPENTER [Concomitant]
     Indication: MYOCARDIAL ISCHAEMIA
     Route: 048
     Dates: start: 2010
  11. SORTIS (ATORVASTATIN) [Concomitant]
     Indication: DYSLIPIDAEMIA
     Route: 048
     Dates: start: 2011
  12. EUTHYROX [Concomitant]
     Indication: HYPOTHYROIDISM
     Route: 048
     Dates: start: 1998
  13. SIOFOR [Concomitant]
     Indication: DIABETES MELLITUS
     Route: 048
     Dates: start: 1998
  14. INSULIN HUMAN [Concomitant]
     Indication: DIABETES MELLITUS
     Dosage: 26-0-20 U
     Route: 048
     Dates: start: 2012

REACTIONS (2)
  - Breast cancer [Unknown]
  - Intraductal proliferative breast lesion [Recovered/Resolved with Sequelae]
